FAERS Safety Report 21774763 (Version 3)
Quarter: 2023Q1

REPORT INFORMATION
  Report Type: Report from Study
  Country: US (occurrence: US)
  Receive Date: 20221224
  Receipt Date: 20230309
  Transmission Date: 20230417
  Serious: No
  Sender: FDA-Public Use
  Company Number: US-002147023-NVSC2022US297731

PATIENT
  Sex: Female

DRUGS (1)
  1. COSENTYX [Suspect]
     Active Substance: SECUKINUMAB
     Indication: Axial spondyloarthritis
     Dosage: 150 MG, QW, (FIRST DOSE ON 29 NOV)
     Route: 058

REACTIONS (5)
  - Night sweats [Recovering/Resolving]
  - Hot flush [Recovering/Resolving]
  - Hypersensitivity [Recovering/Resolving]
  - Malaise [Recovering/Resolving]
  - Initial insomnia [Recovering/Resolving]
